FAERS Safety Report 8577223-3 (Version None)
Quarter: 2012Q3

REPORT INFORMATION
  Report Type: 
  Country: None (occurrence: None)
  Receive Date: 20120807
  Receipt Date: 20120711
  Transmission Date: 20120928
  Serious: No
  Sender: FDA-Public Use
  Company Number: US-009507513-2012SP036537

PATIENT

DRUGS (2)
  1. CLARITIN-D 24 HOUR [Suspect]
     Dosage: 10 MG, ONCE
     Route: 048
     Dates: start: 20120617
  2. CLARITIN-D 24 HOUR [Suspect]
     Indication: HYPERSENSITIVITY
     Dosage: 10 MG, QAM
     Route: 048
     Dates: start: 20120601

REACTIONS (1)
  - OVERDOSE [None]
